FAERS Safety Report 6991685-4 (Version None)
Quarter: 2010Q4

REPORT INFORMATION
  Report Type: 
  Country: None (occurrence: None)
  Receive Date: 20100917
  Receipt Date: 20100908
  Transmission Date: 20110411
  Serious: Yes (Hospitalization)
  Sender: FDA-Public Use
  Company Number: PHHY2010SE59459

PATIENT
  Sex: Male

DRUGS (10)
  1. ZOLEDRONIC [Suspect]
     Indication: OSTEOPOROSIS
     Dosage: UNK
     Dates: start: 20100427
  2. MATRIFEN [Suspect]
     Dosage: 17 MICROGRAM/HOUR
     Route: 062
  3. FURIX [Suspect]
     Dosage: 40 MG, UNK
     Dates: end: 20100525
  4. KALCIPOS-D [Concomitant]
     Dosage: 500 MG/400 IE
  5. PAMOL [Concomitant]
     Dosage: 500 MG, UNK
  6. SIMVASTATIN [Concomitant]
     Dosage: UNK
  7. CITALOPRAM HYDROBROMIDE [Concomitant]
  8. OXASCAND [Concomitant]
     Dosage: 15 MG, UNK
  9. ASPIRIN [Concomitant]
     Dosage: 75 MG, UNK
  10. LAKTULOSE [Concomitant]

REACTIONS (5)
  - BLOOD CREATININE INCREASED [None]
  - DECREASED APPETITE [None]
  - NAUSEA [None]
  - PAIN [None]
  - URINARY RETENTION [None]
